FAERS Safety Report 5448516-3 (Version None)
Quarter: 2007Q3

REPORT INFORMATION
  Report Type: 
  Country: None (occurrence: None)
  Receive Date: 20070911
  Receipt Date: 20070906
  Transmission Date: 20080115
  Serious: Yes (Death, Other)
  Sender: FDA-Public Use
  Company Number: US-BAYER-200711305BWH

PATIENT
  Sex: Male

DRUGS (1)
  1. TRASYLOL [Suspect]
     Indication: POSTOPERATIVE CARE
     Dates: start: 20031001

REACTIONS (4)
  - CARDIAC FAILURE [None]
  - DIALYSIS [None]
  - MYOCARDIAL INFARCTION [None]
  - RENAL FAILURE [None]
